FAERS Safety Report 8329758-6 (Version None)
Quarter: 2012Q2

REPORT INFORMATION
  Report Type: 
  Country: None (occurrence: None)
  Receive Date: 20120502
  Receipt Date: 20091018
  Transmission Date: 20120825
  Serious: No
  Sender: FDA-Public Use
  Company Number: US-TEVA-2009011597

PATIENT
  Sex: Female
  Weight: 102.15 kg

DRUGS (7)
  1. TESTOSTERONE [Concomitant]
  2. OMEPRAZOLE [Concomitant]
  3. PROGESTERONE [Concomitant]
  4. MIRAPEX [Concomitant]
  5. NUVIGIL [Suspect]
     Indication: HYPERSOMNIA
     Dosage: 250 MILLIGRAM;
     Route: 048
     Dates: start: 20090701, end: 20091007
  6. SYNTHROID [Concomitant]
  7. LEXAPRO [Concomitant]

REACTIONS (3)
  - MEMORY IMPAIRMENT [None]
  - INTENTIONAL DRUG MISUSE [None]
  - DISTURBANCE IN ATTENTION [None]
